FAERS Safety Report 11628658 (Version 1)
Quarter: 2015Q4

REPORT INFORMATION
  Report Type: Spontaneous
  Country: US (occurrence: US)
  Receive Date: 20151014
  Receipt Date: 20151014
  Transmission Date: 20160304
  Serious: No
  Sender: FDA-Public Use
  Company Number: US-BIOGENIDEC-2015BI043185

PATIENT
  Age: 20 Year
  Sex: Female

DRUGS (1)
  1. TECFIDERA [Suspect]
     Active Substance: DIMETHYL FUMARATE
     Indication: MULTIPLE SCLEROSIS
     Route: 048
     Dates: start: 20140506

REACTIONS (7)
  - Cough [Unknown]
  - Erythema [Unknown]
  - Hypersensitivity [Recovered/Resolved with Sequelae]
  - Urticaria [Unknown]
  - Pruritus [Unknown]
  - Drug dose omission [Unknown]
  - Flushing [Unknown]

NARRATIVE: CASE EVENT DATE: 20150326
